FAERS Safety Report 7985876-3 (Version None)
Quarter: 2011Q4

REPORT INFORMATION
  Report Type: 
  Country: None (occurrence: None)
  Receive Date: 20111214
  Receipt Date: 20111128
  Transmission Date: 20120403
  Serious: Yes (Other)
  Sender: FDA-Public Use
  Company Number: 2011SP056058

PATIENT
  Age: 81 Year
  Sex: Male

DRUGS (6)
  1. AVODART [Concomitant]
  2. ACIPHEX [Concomitant]
  3. LEVOTHYROXINE SODIUM [Suspect]
     Indication: PRODUCT USED FOR UNKNOWN INDICATION
  4. LISINOPRIL [Concomitant]
  5. MIRALAX [Suspect]
     Indication: CONSTIPATION
     Dosage: ;QD;PO
     Route: 048
     Dates: end: 20111127
  6. TEKTURNA [Concomitant]

REACTIONS (1)
  - HYPERTENSION [None]
